FAERS Safety Report 21795119 (Version 1)
Quarter: 2022Q4

REPORT INFORMATION
  Report Type: Report from Study
  Country: US (occurrence: US)
  Receive Date: 20221229
  Receipt Date: 20221229
  Transmission Date: 20230113
  Serious: Yes (Hospitalization)
  Sender: FDA-Public Use
  Company Number: US-PFIZER INC-PV202200095635

PATIENT
  Age: 68 Year
  Sex: Female
  Weight: 77.551 kg

DRUGS (10)
  1. LIDOCAINE HYDROCHLORIDE [Suspect]
     Active Substance: LIDOCAINE HYDROCHLORIDE
     Indication: Local anaesthesia
     Dosage: UNK
     Route: 042
  2. TYVASO [Suspect]
     Active Substance: TREPROSTINIL
     Indication: Pulmonary arterial hypertension
     Dosage: UNK (INHALATION)
     Dates: start: 20220419
  3. TYVASO [Suspect]
     Active Substance: TREPROSTINIL
     Dosage: UNK, 4X/DAY (18-72 UG, QID, INHALATION)
     Route: 045
  4. TYVASO [Suspect]
     Active Substance: TREPROSTINIL
     Dosage: UNK (INHALATION)
     Route: 045
  5. TYVASO [Suspect]
     Active Substance: TREPROSTINIL
     Dosage: UNK (INHALATION)
     Dates: start: 2022
  6. TYVASO [Suspect]
     Active Substance: TREPROSTINIL
     Dosage: 66 UG, 4X/DAY (66 UG, QID, INHALATION)
     Route: 045
     Dates: start: 2022
  7. TYVASO [Suspect]
     Active Substance: TREPROSTINIL
     Dosage: 72 UG, 4X/DAY (72 UG, QID, INHALATION)
     Dates: start: 2022
  8. TYVASO [Suspect]
     Active Substance: TREPROSTINIL
     Dosage: 60 UG, 4X/DAY (60 UG, QID, INHALATION)
  9. SILDENAFIL CITRATE [Concomitant]
     Active Substance: SILDENAFIL CITRATE
     Dosage: UNK
  10. DILTIAZEM [Concomitant]
     Active Substance: DILTIAZEM
     Dosage: UNK

REACTIONS (3)
  - Drug hypersensitivity [Unknown]
  - Arthralgia [Unknown]
  - Illness [Unknown]
